FAERS Safety Report 8557784-0 (Version None)
Quarter: 2012Q3

REPORT INFORMATION
  Report Type: 
  Country: None (occurrence: None)
  Receive Date: 20120801
  Receipt Date: 20120717
  Transmission Date: 20120928
  Serious: No
  Sender: FDA-Public Use
  Company Number: US-ASTRAZENECA-2012SE49959

PATIENT
  Age: 56 Year
  Sex: Male
  Weight: 96.2 kg

DRUGS (3)
  1. PROAIR HFA [Concomitant]
  2. SYMBICORT [Suspect]
     Dosage: 160/4.5 MCG TWO PUFFS TWO TIMES A DAY
     Route: 055
     Dates: start: 20110101
  3. LIPITOR [Concomitant]

REACTIONS (2)
  - DYSPNOEA [None]
  - DRUG DOSE OMISSION [None]
